FAERS Safety Report 20136612 (Version 1)
Quarter: 2021Q4

REPORT INFORMATION
  Report Type: Spontaneous
  Country: US (occurrence: None)
  Receive Date: 20211201
  Receipt Date: 20211201
  Transmission Date: 20220304
  Serious: Yes (Hospitalization)
  Sender: FDA-Public Use
  Company Number: None

PATIENT
  Age: 68 Year
  Sex: Female

DRUGS (11)
  1. GLATIRAMER [Suspect]
     Active Substance: GLATIRAMER
     Indication: Multiple sclerosis
     Dosage: FREQUENCY : 3 TIMES A WEEK;?
     Route: 058
     Dates: start: 20211109
  2. AZARHIOPRINE [Concomitant]
  3. FAMOTIDINE [Concomitant]
     Active Substance: FAMOTIDINE
  4. FOLIC ACID [Suspect]
     Active Substance: FOLIC ACID
  5. LANTUS [Concomitant]
     Active Substance: INSULIN GLARGINE
  6. LYRICA [Concomitant]
     Active Substance: PREGABALIN
  7. NITROFURANTOIN [Concomitant]
     Active Substance: NITROFURANTOIN
  8. PRAVASTATIN [Concomitant]
     Active Substance: PRAVASTATIN
  9. PREDNISONE [Concomitant]
     Active Substance: PREDNISONE
  10. VICTOZA [Concomitant]
     Active Substance: LIRAGLUTIDE
  11. XARELTO [Concomitant]
     Active Substance: RIVAROXABAN

REACTIONS (1)
  - Hypotension [None]

NARRATIVE: CASE EVENT DATE: 20211122
